FAERS Safety Report 6984122-7 (Version None)
Quarter: 2010Q3

REPORT INFORMATION
  Report Type: 
  Country: None (occurrence: None)
  Receive Date: 20100915
  Receipt Date: 20090616
  Transmission Date: 20110219
  Serious: No
  Sender: FDA-Public Use
  Company Number: US-WYE-H09789209

PATIENT
  Age: 47 Year
  Sex: Female
  Weight: 49.03 kg

DRUGS (1)
  1. ADVIL LIQUI-GELS [Suspect]
     Indication: NECK PAIN
     Route: 048
     Dates: start: 20090611, end: 20090611

REACTIONS (2)
  - ERYTHEMA [None]
  - FEELING HOT [None]
